FAERS Safety Report 6258058-3 (Version None)
Quarter: 2009Q3

REPORT INFORMATION
  Report Type: 
  Country: None (occurrence: None)
  Receive Date: 20090707
  Receipt Date: 20090629
  Transmission Date: 20100115
  Serious: Yes (Hospitalization)
  Sender: FDA-Public Use
  Company Number: BR-ASTRAZENECA-2009UW18381

PATIENT
  Age: 79 Year
  Sex: Female

DRUGS (2)
  1. SELOZOK [Suspect]
     Indication: HYPERTENSION
     Route: 048
     Dates: start: 20050101, end: 20090301
  2. BUFERIN CARDIO [Concomitant]
     Route: 048

REACTIONS (5)
  - EYE DISORDER [None]
  - EYE INFLAMMATION [None]
  - HEART RATE INCREASED [None]
  - HERPES OPHTHALMIC [None]
  - HYPOTHYROIDISM [None]
